FAERS Safety Report 24622609 (Version 1)
Quarter: 2024Q4

REPORT INFORMATION
  Report Type: Spontaneous
  Country: DE (occurrence: DE)
  Receive Date: 20241115
  Receipt Date: 20241115
  Transmission Date: 20250115
  Serious: Yes (Other)
  Sender: ROCHE
  Company Number: None

PATIENT
  Age: 79 Year
  Sex: Male

DRUGS (1)
  1. VABYSMO [Suspect]
     Active Substance: FARICIMAB-SVOA
     Indication: Neovascular age-related macular degeneration
     Dosage: 1 DOSE
     Route: 065

REACTIONS (2)
  - Endophthalmitis [Unknown]
  - Ocular vasculitis [Unknown]

NARRATIVE: CASE EVENT DATE: 20241104
